FAERS Safety Report 5786664-9 (Version None)
Quarter: 2008Q2

REPORT INFORMATION
  Report Type: 
  Country: None (occurrence: None)
  Receive Date: 20080624
  Receipt Date: 20080609
  Transmission Date: 20081010
  Serious: Yes (Other)
  Sender: FDA-Public Use
  Company Number: FR-GENENTECH-263014

PATIENT
  Age: 55 Year
  Sex: Female

DRUGS (4)
  1. MABTHERA [Suspect]
     Indication: CASTLEMAN'S DISEASE
     Dosage: 500 MG, 1/WEEK
     Dates: start: 20050601
  2. METHYLPREDNISOLONE [Suspect]
     Indication: PREMEDICATION
     Dosage: 100 G, UNK
  3. PREDNISONE [Concomitant]
     Indication: DRUG USE FOR UNKNOWN INDICATION
     Dosage: 6 MG, QD
  4. HYDROXYCHLOROQUINE SULFATE [Concomitant]
     Indication: DRUG USE FOR UNKNOWN INDICATION

REACTIONS (1)
  - CRYPTOGENIC ORGANISING PNEUMONIA [None]
